FAERS Safety Report 8370635-2 (Version None)
Quarter: 2012Q2

REPORT INFORMATION
  Report Type: 
  Country: None (occurrence: None)
  Receive Date: 20120518
  Receipt Date: 20120510
  Transmission Date: 20120825
  Serious: Yes (Other)
  Sender: FDA-Public Use
  Company Number: US-US-EMD SERONO, INC.-7098907

PATIENT
  Sex: Female
  Weight: 122 kg

DRUGS (11)
  1. DIOVAN [Concomitant]
     Indication: HYPERTENSION
  2. CLARITIN [Concomitant]
     Indication: HYPERSENSITIVITY
  3. ABILIFY [Concomitant]
     Indication: SCHIZOPHRENIA
  4. ZOCOR [Concomitant]
     Indication: BLOOD CHOLESTEROL INCREASED
  5. REBIF [Suspect]
     Indication: MULTIPLE SCLEROSIS
     Dates: start: 20070727, end: 20071222
  6. METFORMIN HCL [Concomitant]
     Indication: DIABETES MELLITUS
  7. AMBIEN [Concomitant]
     Indication: SLEEP DISORDER
  8. REBIF [Suspect]
     Route: 058
     Dates: start: 20090803, end: 20110501
  9. CYMBALTA [Concomitant]
     Indication: DEPRESSION
  10. NEXIUM [Concomitant]
     Indication: GASTROOESOPHAGEAL REFLUX DISEASE
  11. XANAX [Concomitant]
     Indication: ANXIETY

REACTIONS (3)
  - UTERINE CANCER [None]
  - FIBROCYSTIC BREAST DISEASE [None]
  - OVARIAN CANCER [None]
